FAERS Safety Report 20955460 (Version 2)
Quarter: 2022Q3

REPORT INFORMATION
  Report Type: Other
  Country: US (occurrence: US)
  Receive Date: 20220614
  Receipt Date: 20220919
  Transmission Date: 20221026
  Serious: Yes (Hospitalization)
  Sender: FDA-Public Use
  Company Number: US-INTERCEPT-PM2022001126

PATIENT
  Sex: Female

DRUGS (2)
  1. OCALIVA [Suspect]
     Active Substance: OBETICHOLIC ACID
     Indication: Primary biliary cholangitis
     Dosage: 5 MILLIGRAM, QD
     Route: 048
     Dates: start: 20220317, end: 2022
  2. OCALIVA [Suspect]
     Active Substance: OBETICHOLIC ACID
     Indication: Product use in unapproved indication

REACTIONS (11)
  - Throat tightness [Not Recovered/Not Resolved]
  - Feeling abnormal [Unknown]
  - Chest discomfort [Unknown]
  - Back pain [Unknown]
  - Dysphagia [Not Recovered/Not Resolved]
  - Pyrexia [Unknown]
  - Arthralgia [Unknown]
  - Blood pressure fluctuation [Unknown]
  - Serum ferritin decreased [Unknown]
  - Weight decreased [Unknown]
  - Therapy interrupted [Not Recovered/Not Resolved]

NARRATIVE: CASE EVENT DATE: 20220101
